FAERS Safety Report 13144871 (Version 2)
Quarter: 2017Q1

REPORT INFORMATION
  Report Type: Spontaneous
  Country: US (occurrence: US)
  Receive Date: 20170124
  Receipt Date: 20170222
  Transmission Date: 20170428
  Serious: Yes (Other)
  Sender: FDA-Public Use
  Company Number: US-ELI_LILLY_AND_COMPANY-US201701005873

PATIENT
  Sex: Male

DRUGS (6)
  1. CIALIS [Suspect]
     Active Substance: TADALAFIL
     Indication: ERECTILE DYSFUNCTION
     Dosage: 2.5 MG, PRN
     Route: 065
     Dates: start: 201601, end: 201606
  2. CIALIS [Suspect]
     Active Substance: TADALAFIL
     Dosage: 5 MG, PRN
     Route: 065
     Dates: start: 201601, end: 201606
  3. CIALIS [Suspect]
     Active Substance: TADALAFIL
     Dosage: 10 MG, PRN
     Route: 065
     Dates: start: 201601, end: 201606
  4. CIALIS [Suspect]
     Active Substance: TADALAFIL
     Dosage: 15 MG, PRN
     Route: 065
     Dates: start: 201601, end: 201606
  5. CIALIS [Suspect]
     Active Substance: TADALAFIL
     Dosage: 20 MG, PRN
     Route: 065
     Dates: start: 201601, end: 201606
  6. CIALIS [Suspect]
     Active Substance: TADALAFIL
     Dosage: 7.5 MG, PRN
     Route: 065
     Dates: start: 201601, end: 201606

REACTIONS (11)
  - Dysphagia [Recovered/Resolved]
  - Dyspnoea [Not Recovered/Not Resolved]
  - Flushing [Recovered/Resolved]
  - Swollen tongue [Recovered/Resolved]
  - Local swelling [Not Recovered/Not Resolved]
  - Anxiety [Unknown]
  - Back pain [Recovered/Resolved]
  - Speech disorder [Recovered/Resolved]
  - Wrong technique in product usage process [Unknown]
  - Headache [Recovered/Resolved]
  - Drug ineffective [Recovered/Resolved]
